FAERS Safety Report 20679674 (Version 1)
Quarter: 2022Q2

REPORT INFORMATION
  Report Type: Spontaneous
  Country: US (occurrence: US)
  Receive Date: 20220406
  Receipt Date: 20220406
  Transmission Date: 20220721
  Serious: No
  Sender: FDA-Public Use
  Company Number: US-PFIZER INC-001-0945-M0101001

PATIENT
  Age: 49 Year
  Sex: Female
  Weight: 58.97 kg

DRUGS (5)
  1. NEURONTIN [Suspect]
     Active Substance: GABAPENTIN
     Indication: Migraine
     Dosage: 1200 MG, 1X/DAY
     Dates: start: 200010
  2. NEURONTIN [Suspect]
     Active Substance: GABAPENTIN
     Dosage: 3600 MG, DAILY
     Dates: start: 200012
  3. NEURONTIN [Suspect]
     Active Substance: GABAPENTIN
     Dosage: 12800 MG, DAILY
     Dates: start: 200102
  4. NEURONTIN [Suspect]
     Active Substance: GABAPENTIN
     Dosage: 4000 MG, DAILY
     Dates: start: 2001
  5. CELEBREX [Suspect]
     Active Substance: CELECOXIB
     Indication: Arthralgia
     Dosage: UNK
     Dates: start: 2001, end: 2001

REACTIONS (8)
  - Headache [Recovered/Resolved]
  - Weight increased [Not Recovered/Not Resolved]
  - Arthralgia [Not Recovered/Not Resolved]
  - Drug tolerance increased [Recovered/Resolved]
  - Flat affect [Recovered/Resolved]
  - Off label use [Recovered/Resolved]
  - Drug effective for unapproved indication [Recovered/Resolved]
  - Intentional overdose [Unknown]

NARRATIVE: CASE EVENT DATE: 20000101
